FAERS Safety Report 21246192 (Version 1)
Quarter: 2022Q3

REPORT INFORMATION
  Report Type: Spontaneous
  Country: US (occurrence: US)
  Receive Date: 20220824
  Receipt Date: 20220824
  Transmission Date: 20221027
  Serious: No
  Sender: FDA-Public Use
  Company Number: US-AUROBINDO-AUR-APL-2021-037597

PATIENT
  Sex: Female
  Weight: 54.4 kg

DRUGS (2)
  1. RIZATRIPTAN BENZOATE [Suspect]
     Active Substance: RIZATRIPTAN BENZOATE
     Indication: Migraine
     Dosage: UNK
     Route: 065
  2. BACLOFEN [Concomitant]
     Active Substance: BACLOFEN
     Indication: Muscle relaxant therapy
     Dosage: 20 MILLIGRAM
     Route: 065

REACTIONS (4)
  - Muscle twitching [Unknown]
  - Condition aggravated [Unknown]
  - Vomiting [Unknown]
  - Treatment noncompliance [Unknown]
